FAERS Safety Report 7422564-6 (Version None)
Quarter: 2011Q2

REPORT INFORMATION
  Report Type: 
  Country: None (occurrence: None)
  Receive Date: 20110408
  Receipt Date: 20110325
  Transmission Date: 20111010
  Serious: Yes (Hospitalization)
  Sender: FDA-Public Use
  Company Number: 2010001555

PATIENT
  Age: 44 Year
  Sex: Male
  Weight: 68 kg

DRUGS (13)
  1. 0.9% SODIUM (INJECTION FOR INFUSION) [Concomitant]
  2. DIPYRONE TAB [Concomitant]
  3. LACTULOSE [Concomitant]
  4. PROPRANOLOL [Concomitant]
  5. SPIRONOLACTONE [Concomitant]
  6. OBSIDAN (PROPRANOLOL HYDROCHLORIDE) [Concomitant]
  7. RANITIDINE [Concomitant]
  8. PROPRANOLOL HYDROCHLORIDE [Concomitant]
  9. FERROUS SULFATE TAB [Concomitant]
  10. OMEPRAZOLE [Concomitant]
  11. ERLOTINIB (ERLOTINIB) (TABLET) (ERLOTINIB) [Suspect]
     Indication: HEPATIC NEOPLASM MALIGNANT
     Dosage: (150 MG, QD), ORAL
     Route: 048
     Dates: start: 20100315, end: 20100323
  12. TORSEMIDE [Concomitant]
  13. SORAFENIB [Suspect]
     Indication: HEPATIC NEOPLASM MALIGNANT
     Dosage: (800 MG, QD), ORAL
     Route: 048
     Dates: start: 20100315, end: 20100323

REACTIONS (7)
  - STOMATITIS [None]
  - DEHYDRATION [None]
  - ULCER [None]
  - MUCOSAL INFLAMMATION [None]
  - BLOOD ELECTROLYTES DECREASED [None]
  - RENAL FAILURE [None]
  - DIARRHOEA [None]
